FAERS Safety Report 23273662 (Version 1)
Quarter: 2023Q4

REPORT INFORMATION
  Report Type: Spontaneous
  Country: US (occurrence: US)
  Receive Date: 20231207
  Receipt Date: 20231207
  Transmission Date: 20240109
  Serious: No
  Sender: FDA-Public Use
  Company Number: US-AMGEN-USASP2023218124

PATIENT
  Age: 81 Year
  Sex: Female
  Weight: 45.95 kg

DRUGS (2)
  1. NEULASTA [Suspect]
     Active Substance: PEGFILGRASTIM
     Indication: Prophylaxis
     Dosage: 6 MILLIGRAM
     Route: 065
  2. CARBOPLATIN [Concomitant]
     Active Substance: CARBOPLATIN

REACTIONS (2)
  - Product storage error [Unknown]
  - Intercepted product administration error [Unknown]

NARRATIVE: CASE EVENT DATE: 20231201
